FAERS Safety Report 5060035-5 (Version None)
Quarter: 2006Q3

REPORT INFORMATION
  Report Type: 
  Country: None (occurrence: None)
  Receive Date: 20060719
  Receipt Date: 20060711
  Transmission Date: 20061208
  Serious: Yes (Death)
  Sender: FDA-Public Use
  Company Number: 2005US001469

PATIENT
  Age: 8 Year
  Sex: Male

DRUGS (1)
  1. PROTOPIC [Suspect]
     Indication: ECZEMA
     Dosage: PRN, TOPICAL
     Route: 061
     Dates: start: 20030101

REACTIONS (7)
  - ALPHA HAEMOLYTIC STREPTOCOCCAL INFECTION [None]
  - BACTERAEMIA [None]
  - BACTERIAL INFECTION [None]
  - LYMPH NODE PAIN [None]
  - LYMPHADENITIS [None]
  - NON-HODGKIN'S LYMPHOMA [None]
  - SWELLING [None]
